FAERS Safety Report 9809719 (Version 2)
Quarter: 2014Q1

REPORT INFORMATION
  Report Type: Spontaneous
  Country: US (occurrence: US)
  Receive Date: 20140110
  Receipt Date: 20140110
  Transmission Date: 20141002
  Serious: Yes (Other)
  Sender: FDA-Public Use
  Company Number: US-SANOFI-AVENTIS-2012SA072674

PATIENT
  Sex: Female

DRUGS (2)
  1. PLAVIX [Suspect]
     Indication: PROPHYLAXIS
     Route: 048
     Dates: start: 1999, end: 20091016
  2. ASPIRIN [Suspect]
     Route: 065
     Dates: start: 199901

REACTIONS (2)
  - Cerebral haemorrhage [Not Recovered/Not Resolved]
  - Cerebrovascular accident [Unknown]
